FAERS Safety Report 15377007 (Version 1)
Quarter: 2018Q3

REPORT INFORMATION
  Report Type: Spontaneous
  Country: CN (occurrence: CN)
  Receive Date: 20180913
  Receipt Date: 20180913
  Transmission Date: 20181010
  Serious: Yes (Death)
  Sender: FDA-Public Use
  Company Number: CN-ROCHE-2183709

PATIENT
  Age: 59 Year
  Sex: Male

DRUGS (2)
  1. XELODA [Suspect]
     Active Substance: CAPECITABINE
     Indication: GASTROINTESTINAL CARCINOMA
     Dosage: DAY2? DAY14, 21DAYS AS A CYCLE
     Route: 048
  2. OXALIPLATIN. [Suspect]
     Active Substance: OXALIPLATIN
     Indication: GASTROINTESTINAL CARCINOMA
     Dosage: DAY1, 21DAYS AS A CYCLE
     Route: 041

REACTIONS (4)
  - Diarrhoea [Fatal]
  - White blood cell count decreased [Fatal]
  - Skin discolouration [Fatal]
  - Thrombocytopenia [Fatal]
